FAERS Safety Report 16057592 (Version 1)
Quarter: 2019Q1

REPORT INFORMATION
  Report Type: Spontaneous
  Country: US (occurrence: US)
  Receive Date: 20190311
  Receipt Date: 20190311
  Transmission Date: 20190418
  Serious: No
  Sender: FDA-Public Use
  Company Number: US-SA-2019SA063133

PATIENT
  Age: 59 Year
  Sex: Female

DRUGS (1)
  1. TOUJEO [Suspect]
     Active Substance: INSULIN GLARGINE
     Dosage: 34 UNITS IN THE MORNING AND 30 UNITS IN THE EVENING
     Route: 065
     Dates: start: 201806

REACTIONS (2)
  - Product quality issue [Unknown]
  - Inappropriate schedule of product administration [Unknown]
